FAERS Safety Report 19072538 (Version 4)
Quarter: 2022Q3

REPORT INFORMATION
  Report Type: Spontaneous
  Country: JP (occurrence: JP)
  Receive Date: 20210330
  Receipt Date: 20220714
  Transmission Date: 20221027
  Serious: No
  Sender: FDA-Public Use
  Company Number: JP-GSKNCCC-CASE-01176489_AE-42485

PATIENT

DRUGS (4)
  1. REQUIP [Suspect]
     Active Substance: ROPINIROLE HYDROCHLORIDE
     Indication: Parkinson^s disease
     Dosage: UNK
     Route: 048
  2. NEUPRO [Concomitant]
     Active Substance: ROTIGOTINE
     Indication: Parkinson^s disease
     Dosage: UNK
  3. NEUPRO [Concomitant]
     Active Substance: ROTIGOTINE
     Dosage: 4.5 MG
  4. NEUPRO [Concomitant]
     Active Substance: ROTIGOTINE
     Dosage: 9 MG

REACTIONS (2)
  - Dysphagia [Unknown]
  - Dyskinesia [Unknown]
